FAERS Safety Report 15761729 (Version 3)
Quarter: 2019Q1

REPORT INFORMATION
  Report Type: Spontaneous
  Country: IT (occurrence: IT)
  Receive Date: 20181226
  Receipt Date: 20190108
  Transmission Date: 20190417
  Serious: Yes (Death)
  Sender: FDA-Public Use
  Company Number: IT-JNJFOC-20181222917

PATIENT
  Age: 81 Year
  Sex: Male
  Weight: 87 kg

DRUGS (3)
  1. IMBRUVICA [Suspect]
     Active Substance: IBRUTINIB
     Indication: MANTLE CELL LYMPHOMA
     Route: 048
     Dates: start: 20180713, end: 20181204
  2. IMATINIB MESILATE [Concomitant]
     Active Substance: IMATINIB MESYLATE
     Indication: CHRONIC MYELOID LEUKAEMIA
     Route: 048
     Dates: start: 20141001, end: 20181204
  3. CARDIOASPIRIN [Suspect]
     Active Substance: ASPIRIN
     Indication: MYOCARDIAL ISCHAEMIA
     Route: 048

REACTIONS (4)
  - Incorrect dose administered [Unknown]
  - Subdural haematoma [Fatal]
  - Syncope [Fatal]
  - Off label use [Unknown]

NARRATIVE: CASE EVENT DATE: 20180713
